FAERS Safety Report 8054978-8 (Version None)
Quarter: 2012Q1

REPORT INFORMATION
  Report Type: 
  Country: None (occurrence: None)
  Receive Date: 20120119
  Receipt Date: 20120117
  Transmission Date: 20120608
  Serious: Yes (Other)
  Sender: FDA-Public Use
  Company Number: US-PFIZER INC-2012013503

PATIENT
  Sex: Female
  Weight: 127 kg

DRUGS (3)
  1. FOLIC ACID [Concomitant]
     Dosage: UNK
  2. LIPITOR [Suspect]
     Dosage: UNK
     Route: 048
  3. NIACIN [Concomitant]
     Dosage: UNK

REACTIONS (3)
  - HYPERSENSITIVITY [None]
  - MOBILITY DECREASED [None]
  - BODY TEMPERATURE INCREASED [None]
